FAERS Safety Report 9431541 (Version 4)
Quarter: 2013Q3

REPORT INFORMATION
  Report Type: Spontaneous
  Country: JP (occurrence: JP)
  Receive Date: 20130731
  Receipt Date: 20130813
  Transmission Date: 20140515
  Serious: Yes (Hospitalization)
  Sender: FDA-Public Use
  Company Number: JP-ASTRAZENECA-2013SE55168

PATIENT
  Age: 28874 Day
  Sex: Male
  Weight: 50.2 kg

DRUGS (11)
  1. AZD6140 [Suspect]
     Indication: PERIPHERAL ARTERIAL OCCLUSIVE DISEASE
     Route: 048
     Dates: start: 20130315, end: 20130724
  2. AZD6140 [Suspect]
     Indication: PERIPHERAL ARTERIAL OCCLUSIVE DISEASE
     Route: 048
     Dates: start: 20130808
  3. THEOLONG [Suspect]
     Indication: ASTHMA
     Route: 048
     Dates: start: 200211, end: 20130723
  4. LASIX [Suspect]
     Indication: RENAL FAILURE CHRONIC
     Route: 048
     Dates: start: 200211, end: 20130720
  5. LANSOPRAZOLE [Concomitant]
     Indication: GASTROOESOPHAGEAL REFLUX DISEASE
     Route: 048
     Dates: start: 200211
  6. TERSIGAN [Concomitant]
     Indication: ASTHMA
     Dosage: TOTAL DAILY DOSE 3
     Route: 055
     Dates: start: 200211
  7. URALYT [Concomitant]
     Indication: HYPERURICAEMIA
     Route: 048
     Dates: start: 200211
  8. URINORM [Concomitant]
     Indication: HYPERURICAEMIA
     Route: 048
     Dates: start: 200211
  9. CILOSTAZOL [Concomitant]
     Indication: ARTERIOSCLEROSIS
     Route: 048
     Dates: start: 20120427
  10. MUCOBULIN [Concomitant]
     Indication: ASTHMA
     Route: 048
     Dates: start: 200211, end: 20130801
  11. TSUMURA KEISHITO [Concomitant]
     Indication: DRUG THERAPY
     Route: 048
     Dates: start: 200211

REACTIONS (1)
  - Adrenal insufficiency [Recovering/Resolving]
